FAERS Safety Report 16874462 (Version 1)
Quarter: 2019Q4

REPORT INFORMATION
  Report Type: Report from Study
  Country: RU (occurrence: RU)
  Receive Date: 20191001
  Receipt Date: 20191001
  Transmission Date: 20200122
  Serious: Yes (Other)
  Sender: FDA-Public Use
  Company Number: PHHY2019RU224528

PATIENT
  Age: 35 Year
  Sex: Male

DRUGS (3)
  1. DABRAFENIB [Suspect]
     Active Substance: DABRAFENIB
     Dosage: 75 MG, BID
     Route: 048
  2. DABRAFENIB [Suspect]
     Active Substance: DABRAFENIB
     Indication: METASTATIC MALIGNANT MELANOMA
     Dosage: 150 MG, BID
     Route: 048
     Dates: start: 201908
  3. TRAMETINIB [Suspect]
     Active Substance: TRAMETINIB
     Indication: METASTATIC MALIGNANT MELANOMA
     Dosage: 2 MG, QD
     Route: 048
     Dates: start: 201908

REACTIONS (3)
  - Dysphonia [Not Recovered/Not Resolved]
  - Body temperature increased [Not Recovered/Not Resolved]
  - Swelling [Not Recovered/Not Resolved]

NARRATIVE: CASE EVENT DATE: 20190923
